FAERS Safety Report 7106008-X (Version None)
Quarter: 2010Q4

REPORT INFORMATION
  Report Type: 
  Country: None (occurrence: None)
  Receive Date: 20101116
  Receipt Date: 20101105
  Transmission Date: 20110411
  Serious: Yes (Hospitalization)
  Sender: FDA-Public Use
  Company Number: JP-JNJFOC-20091006940

PATIENT
  Sex: Female
  Weight: 45 kg

DRUGS (13)
  1. REMICADE [Suspect]
     Indication: RHEUMATOID ARTHRITIS
     Dosage: 12 INFUSIONS ON UNSPECIFIED DATES
     Route: 042
  2. REMICADE [Suspect]
     Route: 042
  3. REMICADE [Suspect]
     Route: 042
  4. FOLIAMIN [Concomitant]
     Indication: RHEUMATOID ARTHRITIS
     Route: 048
  5. PREDNISOLONE [Concomitant]
     Indication: RHEUMATOID ARTHRITIS
     Route: 048
  6. VOLTAREN [Concomitant]
     Indication: RHEUMATOID ARTHRITIS
     Route: 048
  7. ALFAROL [Concomitant]
     Indication: OSTEOPOROSIS
     Dosage: DOSE: 1RG
     Route: 048
  8. MUCOSTA [Concomitant]
     Indication: GASTRITIS
     Route: 048
  9. GLAKAY [Concomitant]
     Indication: OSTEOPOROSIS
     Route: 048
  10. RHEUMATREX [Concomitant]
     Indication: RHEUMATOID ARTHRITIS
     Route: 048
  11. BENET [Concomitant]
     Indication: OSTEOPOROSIS
     Route: 048
  12. METHOTREXATE [Concomitant]
     Indication: RHEUMATOID ARTHRITIS
     Route: 048
  13. TAKEPRON [Concomitant]
     Indication: ULCER
     Route: 048

REACTIONS (6)
  - ANAPHYLACTIC SHOCK [None]
  - DRUG SPECIFIC ANTIBODY PRESENT [None]
  - HEADACHE [None]
  - NEUROPATHY PERIPHERAL [None]
  - OSTEOMYELITIS [None]
  - VASCULAR PURPURA [None]
